FAERS Safety Report 19019509 (Version 1)
Quarter: 2021Q1

REPORT INFORMATION
  Report Type: Spontaneous
  Country: IT (occurrence: IT)
  Receive Date: 20210316
  Receipt Date: 20210316
  Transmission Date: 20210420
  Serious: Yes (Hospitalization, Other)
  Sender: FDA-Public Use
  Company Number: IT-AMGEN-ITASP2021039026

PATIENT
  Age: 73 Year
  Sex: Female

DRUGS (3)
  1. CARBOPLATINO TEVA [Concomitant]
     Active Substance: CARBOPLATIN
     Indication: OVARIAN NEOPLASM
     Dosage: 353 MILLIGRAM
     Route: 042
     Dates: start: 20210115, end: 20210212
  2. PACLITAXEL TEVA [Concomitant]
     Active Substance: PACLITAXEL
     Indication: OVARIAN NEOPLASM
     Dosage: 252 MILLIGRAM
     Route: 042
     Dates: start: 20210115, end: 20210212
  3. MVASI [Suspect]
     Active Substance: BEVACIZUMAB-AWWB
     Indication: OVARIAN NEOPLASM
     Dosage: 705 MILLIGRAM
     Route: 042
     Dates: start: 20210115, end: 20210212

REACTIONS (3)
  - Pulmonary oedema [Recovered/Resolved]
  - Cardiac failure [Recovered/Resolved]
  - Hypertensive crisis [Recovered/Resolved]

NARRATIVE: CASE EVENT DATE: 20210212
